FAERS Safety Report 4910285-0 (Version None)
Quarter: 2006Q1

REPORT INFORMATION
  Report Type: 
  Country: None (occurrence: None)
  Receive Date: 20060213
  Receipt Date: 20050309
  Transmission Date: 20060701
  Serious: Yes (Hospitalization, Disabling)
  Sender: FDA-Public Use
  Company Number: US-MERCK-0503USA01425

PATIENT
  Age: 46 Year
  Sex: Female
  Weight: 86 kg

DRUGS (2)
  1. VIOXX [Suspect]
     Indication: OSTEOARTHRITIS
     Route: 048
     Dates: start: 20010619, end: 20010710
  2. VIOXX [Suspect]
     Route: 048
     Dates: start: 20010619, end: 20010710

REACTIONS (4)
  - ACUTE MYOCARDIAL INFARCTION [None]
  - BREAST LUMP REMOVAL [None]
  - BREAST MASS [None]
  - EMOTIONAL DISTRESS [None]
